FAERS Safety Report 12338506 (Version 2)
Quarter: 2016Q2

REPORT INFORMATION
  Report Type: Spontaneous
  Country: US (occurrence: US)
  Receive Date: 20160505
  Receipt Date: 20160518
  Transmission Date: 20160815
  Serious: Yes (Hospitalization, Other)
  Sender: FDA-Public Use
  Company Number: US-CELGENEUS-USA-2016048404

PATIENT
  Age: 50 Year
  Sex: Female
  Weight: 86.26 kg

DRUGS (2)
  1. REVLIMID [Suspect]
     Active Substance: LENALIDOMIDE
     Indication: PLASMA CELL MYELOMA
     Route: 048
     Dates: start: 201603, end: 2016
  2. REVLIMID [Suspect]
     Active Substance: LENALIDOMIDE
     Route: 048
     Dates: start: 2016

REACTIONS (7)
  - Pain [Unknown]
  - Muscle spasms [Unknown]
  - Rash pruritic [Unknown]
  - Pulmonary embolism [Unknown]
  - Hypoaesthesia [Unknown]
  - Intestinal obstruction [Unknown]
  - Constipation [Unknown]

NARRATIVE: CASE EVENT DATE: 2016
